FAERS Safety Report 23328875 (Version 1)
Quarter: 2023Q4

REPORT INFORMATION
  Report Type: Spontaneous
  Country: US (occurrence: US)
  Receive Date: 20231222
  Receipt Date: 20231222
  Transmission Date: 20240109
  Serious: Yes (Other)
  Sender: FDA-Public Use
  Company Number: US-STRIDES ARCOLAB LIMITED-2023SP018857

PATIENT

DRUGS (9)
  1. PREDNISOLONE [Suspect]
     Active Substance: PREDNISOLONE
     Indication: Renal transplant
     Dosage: 5 MILLIGRAM DAILY (FIRST AND SECOND TRIMESTERS)
     Route: 065
  2. MYCOPHENOLATE MOFETIL [Suspect]
     Active Substance: MYCOPHENOLATE MOFETIL
     Indication: Renal transplant
     Dosage: 500 MILLIGRAM, BID (IN FIRST TRIMESTER)
     Route: 048
     Dates: start: 20170924, end: 20230918
  3. OMEPRAZOLE [Suspect]
     Active Substance: OMEPRAZOLE
     Indication: Gastrooesophageal reflux disease
     Dosage: 40 MILLIGRAM DAILY (FIRST AND SECOND TRIMESTERS)
     Route: 065
  4. AMLODIPINE [Suspect]
     Active Substance: AMLODIPINE BESYLATE
     Indication: Hypertension
     Dosage: 10 MILLIGRAM DAILY (FIRST AND SECOND TRIMESTERS)
     Route: 065
  5. BELATACEPT [Suspect]
     Active Substance: BELATACEPT
     Indication: Renal transplant
     Dosage: 5 MILLIGRAM/KILOGRAM, EVERY 4 WEEKS (IN FIRST TRIMESTER)
     Route: 042
     Dates: start: 202008, end: 20230918
  6. COREG [Suspect]
     Active Substance: CARVEDILOL
     Indication: Hypertension
     Dosage: 25 MILLIGRAM, BID (FIRST AND SECOND TRIMESTERS)
     Route: 065
  7. PEGLOTICASE [Suspect]
     Active Substance: PEGLOTICASE
     Indication: Gout
     Dosage: UNK (0,1-8 MG, EVERY 2 WEEKS)
     Route: 065
     Dates: end: 202310
  8. ENVARSUS XR [Suspect]
     Active Substance: TACROLIMUS
     Indication: Renal transplant
     Dosage: UNK (0,1-5 MG, DAILY)
     Route: 065
     Dates: start: 20170924, end: 20230918
  9. TRAZODONE [Suspect]
     Active Substance: TRAZODONE HYDROCHLORIDE
     Indication: Sleep disorder
     Dosage: UNK, (0,1,2-50 MG, AT BED TIME)
     Route: 065

REACTIONS (2)
  - Abortion spontaneous [Unknown]
  - Maternal exposure during pregnancy [Unknown]

NARRATIVE: CASE EVENT DATE: 20231130
